FAERS Safety Report 6665929-2 (Version None)
Quarter: 2010Q1

REPORT INFORMATION
  Report Type: 
  Country: None (occurrence: None)
  Receive Date: 20100330
  Receipt Date: 20100317
  Transmission Date: 20100710
  Serious: Yes (Hospitalization)
  Sender: FDA-Public Use
  Company Number: 2005-136056-NL

PATIENT
  Age: 36 Year
  Sex: Female
  Weight: 72.6 kg

DRUGS (7)
  1. NUVARING [Suspect]
     Indication: ENDOMETRIOSIS
     Dosage: VAG
     Route: 067
     Dates: start: 20040901, end: 20051118
  2. ADVAIR DISKUS 100/50 [Concomitant]
  3. ALBUTEROL [Concomitant]
  4. PROMETHAZINE [Concomitant]
  5. HYDROCODONE BITARTRATE AND ACETAMINOPHEN [Concomitant]
  6. ZYRTEC [Concomitant]
  7. LORTAB [Concomitant]

REACTIONS (37)
  - ADNEXA UTERI CYST [None]
  - AMENORRHOEA [None]
  - BACTERIAL TEST POSITIVE [None]
  - BREAST ENLARGEMENT [None]
  - CHEST PAIN [None]
  - CHONDROSARCOMA [None]
  - DEEP VEIN THROMBOSIS [None]
  - DISEASE RECURRENCE [None]
  - DYSGEUSIA [None]
  - DYSMENORRHOEA [None]
  - EMOTIONAL DISORDER [None]
  - ENDOMETRIOSIS [None]
  - EYE DISORDER [None]
  - FIBROUS DYSPLASIA OF BONE [None]
  - HAEMATOMA [None]
  - HAEMATURIA [None]
  - HAEMOPTYSIS [None]
  - HOT FLUSH [None]
  - HYPOAESTHESIA [None]
  - INTERNATIONAL NORMALISED RATIO INCREASED [None]
  - LYMPHADENOPATHY MEDIASTINAL [None]
  - MENOMETRORRHAGIA [None]
  - NEPHROLITHIASIS [None]
  - NEURILEMMOMA [None]
  - NEUROFIBROMA [None]
  - OVARIAN CYST [None]
  - PNEUMONIA [None]
  - PULMONARY EMBOLISM [None]
  - PULMONARY INFARCTION [None]
  - RENAL ATROPHY [None]
  - SCIATICA [None]
  - SINUSITIS [None]
  - SUPRAVENTRICULAR TACHYCARDIA [None]
  - TACHYCARDIA [None]
  - TONSILLITIS [None]
  - UPPER RESPIRATORY TRACT INFECTION [None]
  - UTERINE POLYP [None]
